FAERS Safety Report 5039073-4 (Version None)
Quarter: 2006Q2

REPORT INFORMATION
  Report Type: 
  Country: None (occurrence: None)
  Receive Date: 20060601
  Receipt Date: 20060110
  Transmission Date: 20061013
  Serious: No
  Sender: FDA-Public Use
  Company Number: 2005PV002300

PATIENT
  Age: 68 Year
  Sex: Male
  Weight: 92.5338 kg

DRUGS (14)
  1. BYETTA [Suspect]
     Indication: DIABETES MELLITUS NON-INSULIN-DEPENDENT
     Dosage: SEE IMAGE
     Route: 058
     Dates: start: 20050721, end: 20050728
  2. BYETTA [Suspect]
     Indication: DIABETES MELLITUS NON-INSULIN-DEPENDENT
     Dosage: SEE IMAGE
     Route: 058
     Dates: start: 20050701
  3. BYETTA [Suspect]
  4. LANTUS [Concomitant]
  5. ASPIRIN [Concomitant]
  6. TRICOR [Concomitant]
  7. ACTOS [Concomitant]
  8. HYZAAR [Concomitant]
  9. GLUCOPHAGE [Concomitant]
  10. CYMBALTA [Concomitant]
  11. ZETIA [Concomitant]
  12. CRESTOR [Concomitant]
  13. PRANDIN [Concomitant]
  14. AMARYL [Concomitant]

REACTIONS (5)
  - B-CELL LYMPHOMA [None]
  - BACK PAIN [None]
  - LYMPHADENOPATHY [None]
  - POLLAKIURIA [None]
  - WEIGHT DECREASED [None]
